FAERS Safety Report 8815772 (Version 1)
Quarter: 2012Q4

REPORT INFORMATION
  Report Type: 
  Country: US (occurrence: US)
  Receive Date: 20120928
  Receipt Date: 20120928
  Transmission Date: 20130627
  Serious: Yes (Hospitalization, Other)
  Sender: FDA-Public Use
  Company Number: US-009507513-2010SP056526

PATIENT

DRUGS (3)
  1. NUVARING [Suspect]
     Indication: CONTRACEPTION
     Dosage: 1 DF, QM
     Route: 067
     Dates: start: 200611, end: 200811
  2. NUVARING [Suspect]
     Dates: start: 200812
  3. ASPIRIN [Concomitant]
     Dosage: 81 mg, QD

REACTIONS (5)
  - Pneumonia [Unknown]
  - Hypercoagulation [Unknown]
  - Pulmonary embolism [Recovered/Resolved]
  - Deep vein thrombosis [Unknown]
  - Urinary tract infection [Unknown]
